FAERS Safety Report 6110685-X (Version None)
Quarter: 2009Q1

REPORT INFORMATION
  Report Type: 
  Country: None (occurrence: None)
  Receive Date: 20090310
  Receipt Date: 20090223
  Transmission Date: 20090719
  Serious: Yes (Other)
  Sender: FDA-Public Use
  Company Number: NL-AMGEN-UK336420

PATIENT

DRUGS (2)
  1. NEUPOGEN [Suspect]
     Indication: DRUG USE FOR UNKNOWN INDICATION
     Route: 065
  2. ENBREL [Suspect]
     Route: 065

REACTIONS (2)
  - LEUKOPENIA [None]
  - WHITE BLOOD CELL COUNT ABNORMAL [None]
